FAERS Safety Report 10812529 (Version 2)
Quarter: 2015Q3

REPORT INFORMATION
  Report Type: Report from Study
  Country: US (occurrence: US)
  Receive Date: 20150218
  Receipt Date: 20150924
  Transmission Date: 20151125
  Serious: Yes (Death, Other)
  Sender: FDA-Public Use
  Company Number: US-GILEAD-2015-0137650

PATIENT
  Age: 78 Year
  Sex: Male

DRUGS (12)
  1. IMIPRAMINE [Concomitant]
     Active Substance: IMIPRAMINE
  2. AMBRISENTAN [Suspect]
     Active Substance: AMBRISENTAN
     Indication: PULMONARY HYPERTENSION
     Dosage: 5 MG, QD
     Route: 065
     Dates: start: 201412
  3. AMBRISENTAN [Suspect]
     Active Substance: AMBRISENTAN
     Indication: AORTIC STENOSIS
  4. ZAROXOLYN [Concomitant]
     Active Substance: METOLAZONE
  5. ZOLOFT [Concomitant]
     Active Substance: SERTRALINE HYDROCHLORIDE
  6. COUMADIN [Concomitant]
     Active Substance: WARFARIN SODIUM
  7. SPIRIVA [Concomitant]
     Active Substance: TIOTROPIUM BROMIDE MONOHYDRATE
  8. DOXAZOSIN [Concomitant]
     Active Substance: DOXAZOSIN\DOXAZOSIN MESYLATE
  9. AMBRISENTAN [Suspect]
     Active Substance: AMBRISENTAN
     Indication: ALCOHOL USE
  10. AMBRISENTAN [Suspect]
     Active Substance: AMBRISENTAN
     Indication: TOBACCO USER
  11. ADCIRCA [Concomitant]
     Active Substance: TADALAFIL
  12. MIRAPEX [Concomitant]
     Active Substance: PRAMIPEXOLE DIHYDROCHLORIDE

REACTIONS (1)
  - Sudden cardiac death [Fatal]

NARRATIVE: CASE EVENT DATE: 201502
